FAERS Safety Report 6191879-4 (Version None)
Quarter: 2009Q2

REPORT INFORMATION
  Report Type: 
  Country: None (occurrence: None)
  Receive Date: 20090515
  Receipt Date: 20090512
  Transmission Date: 20091009
  Serious: Yes (Hospitalization)
  Sender: FDA-Public Use
  Company Number: JP-ELI_LILLY_AND_COMPANY-JP200904000577

PATIENT
  Sex: Male
  Weight: 50 kg

DRUGS (4)
  1. GEMZAR [Suspect]
     Indication: PANCREATIC CARCINOMA STAGE IV
     Dosage: 1500 MG, OTHER
     Route: 042
     Dates: start: 20081224, end: 20090204
  2. LOXONIN [Concomitant]
     Indication: ABDOMINAL PAIN
     Dosage: 120 MG, DAILY (1/D)
     Route: 048
     Dates: start: 20081220
  3. DECADRON [Concomitant]
     Indication: ANOREXIA
     Dosage: 1 MG, DAILY (1/D)
     Route: 048
     Dates: start: 20081216, end: 20090215
  4. OMEPRAL [Concomitant]
     Indication: PROPHYLAXIS AGAINST GASTROINTESTINAL ULCER
     Dosage: 20 MG, DAILY (1/D)
     Route: 048
     Dates: start: 20081220

REACTIONS (3)
  - ASCITES [None]
  - CONSTIPATION [None]
  - INTERSTITIAL LUNG DISEASE [None]
